FAERS Safety Report 4911110-4 (Version None)
Quarter: 2006Q1

REPORT INFORMATION
  Report Type: 
  Country: None (occurrence: None)
  Receive Date: 20060209
  Receipt Date: 20060131
  Transmission Date: 20060701
  Serious: Yes (Hospitalization, Other)
  Sender: FDA-Public Use
  Company Number: 2006016634

PATIENT
  Age: 46 Year
  Sex: Male

DRUGS (3)
  1. PHENYTOIN [Suspect]
     Indication: EPILEPSY
     Dosage: 450 MG (150 MG 3 IN 1D) INTRAVENOUS
     Route: 042
  2. VALPROIC ACID [Concomitant]
  3. PYRIDOXINE (PYRIDOXINE) [Concomitant]

REACTIONS (7)
  - BLOOD CREATINE PHOSPHOKINASE INCREASED [None]
  - HAEMOPHILUS INFECTION [None]
  - LUNG INFILTRATION [None]
  - PAIN IN EXTREMITY [None]
  - PYREXIA [None]
  - RHABDOMYOLYSIS [None]
  - SPUTUM PURULENT [None]
